FAERS Safety Report 9802864 (Version 1)
Quarter: 2014Q1

REPORT INFORMATION
  Report Type: Spontaneous
  Country: US (occurrence: None)
  Receive Date: 20140106
  Receipt Date: 20140106
  Transmission Date: 20141002
  Serious: Yes (Other)
  Sender: FDA-Public Use
  Company Number: None

PATIENT
  Age: 67 Year
  Sex: Male
  Weight: 90.72 kg

DRUGS (2)
  1. IBUPROFEN [Suspect]
     Indication: MUSCULOSKELETAL PAIN
     Dates: start: 20140104, end: 20140104
  2. IBUPROFEN [Suspect]
     Indication: PAIN IN EXTREMITY
     Dates: start: 20140104, end: 20140104

REACTIONS (11)
  - Tremor [None]
  - Disorientation [None]
  - Nausea [None]
  - Feeling cold [None]
  - Gait disturbance [None]
  - Hallucination [None]
  - Headache [None]
  - Dizziness [None]
  - Speech disorder [None]
  - Impaired driving ability [None]
  - Abnormal dreams [None]
